FAERS Safety Report 13460547 (Version 1)
Quarter: 2017Q2

REPORT INFORMATION
  Report Type: Spontaneous
  Country: US (occurrence: US)
  Receive Date: 20170420
  Receipt Date: 20170420
  Transmission Date: 20170830
  Serious: No
  Sender: FDA-Public Use
  Company Number: US-PFIZER INC-2017169343

PATIENT
  Age: 56 Year
  Sex: Female

DRUGS (1)
  1. XELJANZ XR [Suspect]
     Active Substance: TOFACITINIB CITRATE
     Indication: RHEUMATOID ARTHRITIS
     Dosage: 11 MG, UNK

REACTIONS (8)
  - Upper respiratory tract infection [Unknown]
  - Dry mouth [Unknown]
  - Joint crepitation [Unknown]
  - Arthralgia [Unknown]
  - Fibromyalgia [Unknown]
  - Anaemia [Unknown]
  - Nodal osteoarthritis [Unknown]
  - Dry eye [Unknown]
